FAERS Safety Report 24544223 (Version 1)
Quarter: 2024Q4

REPORT INFORMATION
  Report Type: Report from Study
  Country: CA (occurrence: CA)
  Receive Date: 20241024
  Receipt Date: 20241024
  Transmission Date: 20250115
  Serious: Yes (Other)
  Sender: ABBVIE
  Company Number: CA-ABBVIE-5969289

PATIENT
  Sex: Male

DRUGS (1)
  1. VIIBRYD [Suspect]
     Active Substance: VILAZODONE HYDROCHLORIDE
     Indication: Major depression
     Dosage: FORM STRENGTH: 40 MG
     Route: 048
     Dates: start: 20230301

REACTIONS (5)
  - Mobility decreased [Unknown]
  - Erythema [Unknown]
  - Blood pressure increased [Unknown]
  - Agitation [Unknown]
  - Mental disorder [Unknown]
